FAERS Safety Report 21788740 (Version 1)
Quarter: 2022Q4

REPORT INFORMATION
  Report Type: Spontaneous
  Country: US (occurrence: US)
  Receive Date: 20221228
  Receipt Date: 20221228
  Transmission Date: 20230112
  Serious: No
  Sender: FDA-Public Use
  Company Number: US-PFIZER INC-202201396101

PATIENT
  Sex: Female

DRUGS (2)
  1. FLAGYL [Suspect]
     Active Substance: METRONIDAZOLE\METRONIDAZOLE HYDROCHLORIDE
     Indication: Terminal ileitis
     Dosage: UNK
     Dates: start: 2022
  2. CIPRO [Suspect]
     Active Substance: CIPROFLOXACIN HYDROCHLORIDE
     Indication: Terminal ileitis
     Dosage: UNK
     Dates: start: 2022

REACTIONS (3)
  - Vaginal lesion [Unknown]
  - Skin lesion [Unknown]
  - Off label use [Unknown]

NARRATIVE: CASE EVENT DATE: 20220101
